FAERS Safety Report 4577204-0 (Version None)
Quarter: 2005Q1

REPORT INFORMATION
  Report Type: 
  Country: None (occurrence: None)
  Receive Date: 20050207
  Receipt Date: 20040622
  Transmission Date: 20050727
  Serious: Yes (Life-Threatening)
  Sender: FDA-Public Use
  Company Number: WAES 0406DEU00145

PATIENT
  Age: 76 Year
  Sex: Male

DRUGS (5)
  1. VYTORIN [Suspect]
     Indication: HYPERCHOLESTEROLAEMIA
     Dosage: 10-20 MG/DAILY
     Route: 048
     Dates: start: 20040609, end: 20040615
  2. ASPIRIN [Concomitant]
  3. GLYBURIDE [Concomitant]
  4. METFORMIN HCL [Concomitant]
  5. PRAVASTATIN SODIUM [Concomitant]

REACTIONS (7)
  - ABDOMINAL PAIN UPPER [None]
  - ADVERSE EVENT [None]
  - CIRCULATORY COLLAPSE [None]
  - CONSTIPATION [None]
  - FEELING ABNORMAL [None]
  - HEADACHE [None]
  - MYALGIA [None]
